FAERS Safety Report 17371954 (Version 1)
Quarter: 2020Q1

REPORT INFORMATION
  Report Type: Spontaneous
  Country: US (occurrence: US)
  Receive Date: 20200205
  Receipt Date: 20200205
  Transmission Date: 20200409
  Serious: Yes (Death)
  Sender: FDA-Public Use
  Company Number: US-PFIZER INC-2016077441

PATIENT
  Age: 76 Year
  Sex: Female
  Weight: 78 kg

DRUGS (36)
  1. ALENDRONATE [Concomitant]
     Active Substance: ALENDRONATE SODIUM
     Indication: OSTEOPOROSIS
     Dosage: 70 MG, WEEKLY (ONCE WEEKLY)
  2. CILOSTAZOL. [Concomitant]
     Active Substance: CILOSTAZOL
     Indication: LIMB DISCOMFORT
     Dosage: 100 MG, 2X/DAY
  3. SYMBICORT [Concomitant]
     Active Substance: BUDESONIDE\FORMOTEROL FUMARATE DIHYDRATE
     Indication: ASTHMA
  4. NEURONTIN [Concomitant]
     Active Substance: GABAPENTIN
     Dosage: 100 MG, DAILY
     Route: 048
  5. ZESTRIL [Concomitant]
     Active Substance: LISINOPRIL
     Dosage: 10 MG, 2X/DAY
     Route: 048
  6. DELTASONE [PREDNISOLONE] [Concomitant]
     Dosage: 40 MG, DAILY (TAKE 2 TABLETS)
     Route: 048
  7. DESYREL [Concomitant]
     Active Substance: TRAZODONE HYDROCHLORIDE
     Indication: INSOMNIA
     Dosage: 150 MG, AS NEEDED (TAKE 1 TABLET (150 MG TOTAL) BY MOUTH NIGHTLY AS NEEDED)
     Route: 048
  8. VENTOLIN HFA [Concomitant]
     Active Substance: ALBUTEROL SULFATE
     Dosage: UNK (PROVENTIL HFA: VENTOLIN HFA 90 MCG/ACTUATION INHALER)
  9. NITROSTAT [Concomitant]
     Active Substance: NITROGLYCERIN
     Dosage: 0.4 MG AS NEEDED (NITROSTAT TAB SL (0.4 MG) 1 TABLET SL Q5MIN PM )
  10. BUPROPION. [Concomitant]
     Active Substance: BUPROPION
     Indication: DEPRESSION
     Dosage: 100 MG, 2X/DAY
  11. SYMBICORT [Concomitant]
     Active Substance: BUDESONIDE\FORMOTEROL FUMARATE DIHYDRATE
     Indication: CHRONIC OBSTRUCTIVE PULMONARY DISEASE
     Dosage: UNK UNK, 2X/DAY (160-4.5 MCG/ACTUATION INHALER)
     Route: 055
  12. GABAPENTIN. [Concomitant]
     Active Substance: GABAPENTIN
     Indication: MUSCLE SPASMS
  13. LOVASTATIN. [Concomitant]
     Active Substance: LOVASTATIN
     Indication: BLOOD CHOLESTEROL DECREASED
     Dosage: 40 MG, DAILY
  14. CELEBREX [Suspect]
     Active Substance: CELECOXIB
     Indication: PERIPHERAL VASCULAR DISORDER
     Dosage: 200 MG, DAILY
     Route: 048
     Dates: start: 20191029
  15. PLETAL [Concomitant]
     Active Substance: CILOSTAZOL
     Dosage: 100 MG, 2X/DAY (TAKE 1 TABLET (100 MG TOTAL) BY MOUTH 2 (TWO) TIMES DAILY BEFORE MEALS TAKE 30 MI)
     Route: 048
  16. ULTRAM [Concomitant]
     Active Substance: TRAMADOL HYDROCHLORIDE
     Indication: PAIN
     Dosage: 50 MG, AS NEEDED (TAKE 1 TABLET (50 MG TOTAL) BY MOUTH  EVERY 6 (SIX)  HOURS)
     Route: 048
  17. IPRATROPIUM BROMIDE AND ALBUTEROL SULFATE [Concomitant]
     Active Substance: ALBUTEROL SULFATE\IPRATROPIUM BROMIDE
     Indication: CHRONIC OBSTRUCTIVE PULMONARY DISEASE
     Dosage: UNK (EVERY FOUR HOURS)
  18. SAVELLA [Concomitant]
     Active Substance: MILNACIPRAN HYDROCHLORIDE
     Indication: FIBROMYALGIA
     Dosage: 50 MG, 2X/DAY
     Route: 048
  19. PROVENTIL HFA [SALBUTAMOL] [Concomitant]
     Dosage: UNK (ALBATE HFA AEROSOL (90-MCG/ACTUATION) 2 PUFFS INH Q4-6HR PM)
  20. PRINIVIL [Concomitant]
     Active Substance: LISINOPRIL
     Dosage: 10 MG, 2X/DAY
     Route: 048
  21. TRAZODONE HYDROCHLORIDE. [Concomitant]
     Active Substance: TRAZODONE HYDROCHLORIDE
     Indication: INSOMNIA
     Dosage: 150 MG, UNK
  22. LIQUID OXYGEN [Concomitant]
     Active Substance: OXYGEN
     Indication: CHRONIC OBSTRUCTIVE PULMONARY DISEASE
  23. LORAZEPAM. [Concomitant]
     Active Substance: LORAZEPAM
     Indication: ANXIETY
     Dosage: 1 MG, AS NEEDED
  24. VITAMIN D3 [Concomitant]
     Active Substance: CHOLECALCIFEROL
     Dosage: 2000 IU, DAILY
     Route: 048
  25. WELLBUTRIN SR [Concomitant]
     Active Substance: BUPROPION HYDROCHLORIDE
     Dosage: 200 MG DAILY (TAKE 2 TABLETS DAILY)
  26. DILTIAZEM. [Concomitant]
     Active Substance: DILTIAZEM
     Indication: BLOOD PRESSURE MEASUREMENT
     Dosage: 180 MG, 2X/DAY
  27. SYNTHROID [Concomitant]
     Active Substance: LEVOTHYROXINE SODIUM
     Dosage: 100 UG, DAILY(TAKE 1 TABLET (100 MCG TOTAL) BY MOUTH DAILY)
     Route: 048
  28. NORVASC [Concomitant]
     Active Substance: AMLODIPINE BESYLATE
     Indication: ANTICOAGULANT THERAPY
     Dosage: 2.5 MG, DAILY (ONCE DAILY)
     Route: 048
  29. GABAPENTIN. [Concomitant]
     Active Substance: GABAPENTIN
     Indication: PAIN
     Dosage: 100 MG, DAILY
  30. LIQUID OXYGEN [Concomitant]
     Active Substance: OXYGEN
     Indication: ASTHMA
  31. ROBITUSSIN (GUAIFENESIN) [Concomitant]
     Active Substance: GUAIFENESIN
     Dosage: 400 MG, AS NEEDED
  32. CELEBREX [Suspect]
     Active Substance: CELECOXIB
     Indication: ARTHRITIS
     Dosage: 200 MG, DAILY
     Route: 048
     Dates: start: 20160127
  33. FOSAMAX [Concomitant]
     Active Substance: ALENDRONATE SODIUM
     Dosage: 70 MG, UNK
  34. DUONEB [Concomitant]
     Active Substance: ALBUTEROL SULFATE\IPRATROPIUM BROMIDE
     Dosage: UNK (0.5 MG-3 MG (2.5 MG BASE)/3 ML) EVERY 4 HRS
     Route: 048
  35. MEVACOR [Concomitant]
     Active Substance: LOVASTATIN
     Dosage: 40 MG, DAILY
     Route: 048
  36. LEVOTHYROXIN [Concomitant]
     Active Substance: LEVOTHYROXINE
     Indication: THYROID DISORDER
     Dosage: 0.1 MG, DAILY

REACTIONS (1)
  - Death [Fatal]
